FAERS Safety Report 22373132 (Version 7)
Quarter: 2024Q2

REPORT INFORMATION
  Report Type: Spontaneous
  Country: CA (occurrence: CA)
  Receive Date: 20230526
  Receipt Date: 20240516
  Transmission Date: 20240715
  Serious: Yes (Life-Threatening, Hospitalization, Other)
  Sender: FDA-Public Use
  Company Number: CA-HEALTHCANVIG-E2B_02932101

PATIENT
  Age: 56 Year
  Sex: Male

DRUGS (421)
  1. HYDROMORPHONE HYDROCHLORIDE [Suspect]
     Active Substance: HYDROMORPHONE HYDROCHLORIDE
     Indication: Product used for unknown indication
     Dosage: UNK
     Route: 065
  2. HYDROMORPHONE HYDROCHLORIDE [Suspect]
     Active Substance: HYDROMORPHONE HYDROCHLORIDE
     Indication: Prinzmetal angina
  3. HYDROMORPHONE HYDROCHLORIDE [Suspect]
     Active Substance: HYDROMORPHONE HYDROCHLORIDE
     Indication: Migraine
  4. CODEINE [Suspect]
     Active Substance: CODEINE
     Indication: Product used for unknown indication
     Dosage: UNK
     Route: 065
  5. ACETAMINOPHEN [Suspect]
     Active Substance: ACETAMINOPHEN
     Indication: Product used for unknown indication
     Dosage: 160 MILLIGRAM
     Route: 065
  6. ACETAMINOPHEN [Suspect]
     Active Substance: ACETAMINOPHEN
     Indication: Prinzmetal angina
     Dosage: UNK
     Route: 065
  7. ACETAMINOPHEN [Suspect]
     Active Substance: ACETAMINOPHEN
     Indication: Migraine
  8. ACETAMINOPHEN\CODEINE PHOSPHATE [Suspect]
     Active Substance: ACETAMINOPHEN\CODEINE PHOSPHATE
     Indication: Product used for unknown indication
     Dosage: 1 EVERY 6 HRS
     Route: 065
  9. ACETAMINOPHEN\CODEINE PHOSPHATE [Suspect]
     Active Substance: ACETAMINOPHEN\CODEINE PHOSPHATE
     Indication: Prinzmetal angina
     Dosage: 1 EVERY 4 DAY
     Route: 048
  10. ACETAMINOPHEN\CODEINE PHOSPHATE [Suspect]
     Active Substance: ACETAMINOPHEN\CODEINE PHOSPHATE
     Indication: Migraine
     Dosage: 1 DOSAGE FORM 1 EVERY 6 HRS
     Route: 065
  11. ACETAMINOPHEN\CODEINE PHOSPHATE [Suspect]
     Active Substance: ACETAMINOPHEN\CODEINE PHOSPHATE
     Dosage: 1 DOSAGE FORM, DAILY
     Route: 048
  12. ACETAMINOPHEN AND CODEINE [Suspect]
     Active Substance: ACETAMINOPHEN\CODEINE PHOSPHATE
     Indication: Product used for unknown indication
     Dosage: 160 MILLIGRAM
     Route: 065
  13. ACETAMINOPHEN AND CODEINE [Suspect]
     Active Substance: ACETAMINOPHEN\CODEINE PHOSPHATE
     Dosage: UNK
     Route: 048
  14. ACETAMINOPHEN AND CODEINE [Suspect]
     Active Substance: ACETAMINOPHEN\CODEINE PHOSPHATE
     Dosage: 1 EVERY 4 DAY
     Route: 065
  15. ACETAMINOPHEN AND CODEINE [Suspect]
     Active Substance: ACETAMINOPHEN\CODEINE PHOSPHATE
     Dosage: 1 EVERY 1 DAYS/1 EVERY 24 HOURS
     Route: 048
  16. ACETAMINOPHEN AND CODEINE [Suspect]
     Active Substance: ACETAMINOPHEN\CODEINE PHOSPHATE
     Dosage: UNK (DOSAGE REGIMEN WAS REPORTED 2 TIMES)
     Route: 065
  17. ALPRAZOLAM [Suspect]
     Active Substance: ALPRAZOLAM
     Indication: Product used for unknown indication
     Dosage: UNK
     Route: 065
  18. ALPRAZOLAM [Suspect]
     Active Substance: ALPRAZOLAM
     Indication: Prinzmetal angina
  19. ALPRAZOLAM [Suspect]
     Active Substance: ALPRAZOLAM
     Indication: Migraine
  20. AMLODIPINE BESYLATE [Suspect]
     Active Substance: AMLODIPINE BESYLATE
     Indication: Product used for unknown indication
     Dosage: 1.5 DOSAGE FORM, DAILY
     Route: 065
  21. AMLODIPINE BESYLATE [Suspect]
     Active Substance: AMLODIPINE BESYLATE
     Indication: Prinzmetal angina
     Dosage: 1 DOSAGE FORM, DAILY
     Route: 065
  22. AMLODIPINE BESYLATE [Suspect]
     Active Substance: AMLODIPINE BESYLATE
     Indication: Migraine
     Dosage: 1.5 DOSAGE FORM
     Route: 065
  23. AMLODIPINE BESYLATE [Suspect]
     Active Substance: AMLODIPINE BESYLATE
     Dosage: 2 DOSAGE FORM
     Route: 065
  24. AMLODIPINE BESYLATE [Suspect]
     Active Substance: AMLODIPINE BESYLATE
     Dosage: 1 DOSAGE FORM, 1 EVERY 8 HOURS
     Route: 065
  25. AMLODIPINE BESYLATE [Suspect]
     Active Substance: AMLODIPINE BESYLATE
     Dosage: 1 EVERY 1 DAYS
     Route: 065
  26. AMLODIPINE BESYLATE [Suspect]
     Active Substance: AMLODIPINE BESYLATE
     Dosage: UNK
     Route: 065
  27. AMLODIPINE BESYLATE [Suspect]
     Active Substance: AMLODIPINE BESYLATE
     Dosage: 1 DOSAGE FORM
     Route: 065
  28. AMLODIPINE BESYLATE [Suspect]
     Active Substance: AMLODIPINE BESYLATE
     Dosage: UNK (DOSAGE REGIMEN WAS REPORTED 2 TIMES)
     Route: 065
  29. AMLODIPINE BESYLATE [Suspect]
     Active Substance: AMLODIPINE BESYLATE
     Dosage: 1 EVERY 1 DAYS
     Route: 065
  30. AMLODIPINE BESYLATE [Suspect]
     Active Substance: AMLODIPINE BESYLATE
     Dosage: 1.5 DOSAGE FORM, DAILY (1 EVERY 24 HOURS) (DOSAGE REGIMEN WAS REPORTED 3 TIMES)
     Route: 065
  31. AMLODIPINE BESYLATE [Suspect]
     Active Substance: AMLODIPINE BESYLATE
     Dosage: 1 DOSAGE FORM 1 EVERY 8 HOURS
     Route: 065
  32. TRAZODONE HYDROCHLORIDE [Suspect]
     Active Substance: TRAZODONE HYDROCHLORIDE
     Indication: Product used for unknown indication
     Dosage: 1 DOSAGE FORM
     Route: 065
  33. TRAZODONE HYDROCHLORIDE [Suspect]
     Active Substance: TRAZODONE HYDROCHLORIDE
     Dosage: 1 DOSAGE FORM, DAILY
     Route: 048
  34. TRAZODONE HYDROCHLORIDE [Suspect]
     Active Substance: TRAZODONE HYDROCHLORIDE
     Dosage: 1 DOSAGE FORM, DAILY (1 EVERY 1 DAYS)
     Route: 065
  35. TRAZODONE HYDROCHLORIDE [Suspect]
     Active Substance: TRAZODONE HYDROCHLORIDE
     Dosage: UNK
     Route: 065
  36. TRAZODONE HYDROCHLORIDE [Suspect]
     Active Substance: TRAZODONE HYDROCHLORIDE
     Dosage: 1 EVERY 1 DAYS
     Route: 065
  37. ASPIRIN [Suspect]
     Active Substance: ASPIRIN
     Indication: Prinzmetal angina
     Dosage: 1 DOSAGE FORM
     Route: 065
  38. ASPIRIN [Suspect]
     Active Substance: ASPIRIN
     Indication: Migraine
     Dosage: 1 DOSAGE FORM
     Route: 048
  39. ASPIRIN [Suspect]
     Active Substance: ASPIRIN
     Dosage: 81 MILLIGRAM
     Route: 065
  40. ASPIRIN [Suspect]
     Active Substance: ASPIRIN
     Dosage: 1 DOSAGE FORM
     Route: 048
  41. ASPIRIN [Suspect]
     Active Substance: ASPIRIN
     Dosage: UNK
     Route: 048
  42. ASPIRIN [Suspect]
     Active Substance: ASPIRIN
     Dosage: 81 MILLIGRAM, DAILY (1 EVERY 1 DAYS)
     Route: 065
  43. ASPIRIN [Suspect]
     Active Substance: ASPIRIN
     Dosage: 1 EVERY 1 DAYS
     Route: 065
  44. ASPIRIN [Suspect]
     Active Substance: ASPIRIN
     Dosage: UNK, DAILY (1 EVERY 1 DAYS)
     Route: 048
  45. ASPIRIN [Suspect]
     Active Substance: ASPIRIN
     Dosage: 1 DOSAGE FORM, DAY
     Route: 065
  46. ASPIRIN [Suspect]
     Active Substance: ASPIRIN
     Dosage: 81 MILLIGRAM, DAILY (1 EVERY 1 DAYS)
     Route: 048
  47. ASPIRIN [Suspect]
     Active Substance: ASPIRIN
     Dosage: 1 DOSAGE FORM
     Route: 065
  48. TICAGRELOR [Suspect]
     Active Substance: TICAGRELOR
     Indication: Product used for unknown indication
     Dosage: 1 DOSAGE FORM
     Route: 065
  49. TICAGRELOR [Suspect]
     Active Substance: TICAGRELOR
     Indication: Prinzmetal angina
     Dosage: 2 DOSAGE FORM
     Route: 048
  50. TICAGRELOR [Suspect]
     Active Substance: TICAGRELOR
     Indication: Migraine
     Dosage: 1 DOSAGE FORM
     Route: 048
  51. TICAGRELOR [Suspect]
     Active Substance: TICAGRELOR
     Dosage: 2 DOSAGE FORM, DAILY
     Route: 048
  52. TICAGRELOR [Suspect]
     Active Substance: TICAGRELOR
     Dosage: 1 DOSAGE FORM 1 EVERY 12 HOURS
     Route: 048
  53. TICAGRELOR [Suspect]
     Active Substance: TICAGRELOR
     Dosage: 2 DOSAGE FORM
     Route: 065
  54. TICAGRELOR [Suspect]
     Active Substance: TICAGRELOR
     Dosage: 1 DOSAGE FORM, (1 EVERY 5 DAYS)
     Route: 048
  55. TICAGRELOR [Suspect]
     Active Substance: TICAGRELOR
     Dosage: 1 DOSAGE FORM, DAILY (1 EVERY 1 DAYS)
     Route: 065
  56. TICAGRELOR [Suspect]
     Active Substance: TICAGRELOR
     Dosage: 2 DOSAGE FORM,(1 EVERY 12 HOURS)
     Route: 065
  57. TICAGRELOR [Suspect]
     Active Substance: TICAGRELOR
     Dosage: UNK,1 EVERY 24 HOURS
     Route: 065
  58. TICAGRELOR [Suspect]
     Active Substance: TICAGRELOR
     Dosage: UNK
     Route: 065
  59. TICAGRELOR [Suspect]
     Active Substance: TICAGRELOR
     Dosage: UNK,2 EVERY 1 DAYS
     Route: 065
  60. TICAGRELOR [Suspect]
     Active Substance: TICAGRELOR
     Dosage: UNK,2 EVERY 1 DAYS
     Route: 048
  61. CICLOPIROX [Suspect]
     Active Substance: CICLOPIROX\TOCOPHEROL
     Indication: Product used for unknown indication
     Dosage: 1 DOSAGE FORM, DAILY
     Route: 065
  62. CICLOPIROX [Suspect]
     Active Substance: CICLOPIROX\TOCOPHEROL
     Indication: Prinzmetal angina
     Dosage: UNK
     Route: 065
  63. CICLOPIROX [Suspect]
     Active Substance: CICLOPIROX\TOCOPHEROL
     Indication: Migraine
     Dosage: 1 DOSAGE FORM
     Route: 048
  64. CICLOPIROX [Suspect]
     Active Substance: CICLOPIROX\TOCOPHEROL
     Dosage: 3 DOSAGE FORM, DAILY
     Route: 048
  65. CICLOPIROX [Suspect]
     Active Substance: CICLOPIROX\TOCOPHEROL
     Dosage: UNK, DAILY (1 EVERY 1 DAYS)
     Route: 065
  66. CICLOPIROX [Suspect]
     Active Substance: CICLOPIROX\TOCOPHEROL
     Dosage: 1 DOSAGE FORM, DAILY
     Route: 048
  67. CICLOPIROX [Suspect]
     Active Substance: CICLOPIROX\TOCOPHEROL
     Dosage: UNK
     Route: 048
  68. CICLOPIROX [Suspect]
     Active Substance: CICLOPIROX\TOCOPHEROL
     Dosage: 1 DOSAGE FORM
     Route: 065
  69. CICLOPIROX [Suspect]
     Active Substance: CICLOPIROX\TOCOPHEROL
     Dosage: 1 DOSAGE FORM, DAILY (1 EVERY 1 DAYS)
     Route: 065
  70. CICLOPIROX [Suspect]
     Active Substance: CICLOPIROX\TOCOPHEROL
     Dosage: 3 DOSAGE FORM, DAILY
     Route: 065
  71. CICLOPIROX [Suspect]
     Active Substance: CICLOPIROX\TOCOPHEROL
     Indication: Product used for unknown indication
     Dosage: 1 EVERY 1 DAYS
     Route: 065
  72. CICLOPIROX [Suspect]
     Active Substance: CICLOPIROX\TOCOPHEROL
     Indication: Prinzmetal angina
  73. CICLOPIROX [Suspect]
     Active Substance: CICLOPIROX\TOCOPHEROL
     Indication: Migraine
  74. CLONAZEPAM [Suspect]
     Active Substance: CLONAZEPAM
     Indication: Product used for unknown indication
     Dosage: 1 DOSAGE FORM
     Route: 048
  75. CLONAZEPAM [Suspect]
     Active Substance: CLONAZEPAM
     Indication: Prinzmetal angina
     Dosage: UNK
     Route: 065
  76. CLONAZEPAM [Suspect]
     Active Substance: CLONAZEPAM
     Indication: Migraine
     Dosage: 3 DOSAGE FORM
     Route: 048
  77. CLONAZEPAM [Suspect]
     Active Substance: CLONAZEPAM
     Dosage: 1 DOSAGE FORM 1 EVERY 8 HOURS
     Route: 048
  78. CLONAZEPAM [Suspect]
     Active Substance: CLONAZEPAM
     Dosage: 3 DOSAGE FORM, DAILY
     Route: 048
  79. CLONAZEPAM [Suspect]
     Active Substance: CLONAZEPAM
     Dosage: 3 DOSAGE FORM, Q8H (1 EVERY 8 HOURS)
     Route: 048
  80. CLONAZEPAM [Suspect]
     Active Substance: CLONAZEPAM
     Dosage: 1 MILLIGRAM
     Route: 065
  81. CLONAZEPAM [Suspect]
     Active Substance: CLONAZEPAM
     Dosage: 1 DOSAGE FORM, DAILY (1 EVERY 1 DAYS)
     Route: 048
  82. CLONAZEPAM [Suspect]
     Active Substance: CLONAZEPAM
     Dosage: 0.5 MILLIGRAM
     Route: 065
  83. CLONAZEPAM [Suspect]
     Active Substance: CLONAZEPAM
     Dosage: 1 DOSAGE FORM,1 EVERY 8 HOURS
     Route: 065
  84. CLONAZEPAM [Suspect]
     Active Substance: CLONAZEPAM
     Dosage: 1 DOSAGE FORM (DOSAGE REGIMEN WAS REPORTED 2 TIMES)
     Route: 065
  85. CLONAZEPAM [Suspect]
     Active Substance: CLONAZEPAM
     Dosage: 3 DOSAGE FORM, 1 EVERY 8 HOURS (DOSAGE REGIMEN WAS REPORTED 2 TIMES)
     Route: 065
  86. CLONAZEPAM [Suspect]
     Active Substance: CLONAZEPAM
     Dosage: (1 EVERY 24 HOURS)
     Route: 065
  87. TESTOSTERONE [Suspect]
     Active Substance: TESTOSTERONE
     Indication: Prinzmetal angina
     Dosage: 0.5 MILLILITER, DAILY
     Route: 030
  88. TESTOSTERONE [Suspect]
     Active Substance: TESTOSTERONE
     Indication: Migraine
     Dosage: 0.5 MILLILITER 1 EVERY 2 WEEKS (DOSAGE REGIMEN WAS REPORTED 4 TIMES).
     Route: 030
  89. TESTOSTERONE [Suspect]
     Active Substance: TESTOSTERONE
     Dosage: 1 MILLILITER
     Route: 030
  90. TESTOSTERONE [Suspect]
     Active Substance: TESTOSTERONE
     Dosage: 5 MILLILITER 1 EVERY 2 WEEKS
     Route: 030
  91. TESTOSTERONE [Suspect]
     Active Substance: TESTOSTERONE
     Dosage: 1 DOSAGE FORM 1EVERY 12 HOURS
     Route: 030
  92. TESTOSTERONE [Suspect]
     Active Substance: TESTOSTERONE
     Dosage: 5 MILLILITER
     Route: 030
  93. TESTOSTERONE [Suspect]
     Active Substance: TESTOSTERONE
     Dosage: 1 DOSAGE FORM
     Route: 030
  94. TESTOSTERONE [Suspect]
     Active Substance: TESTOSTERONE
     Dosage: 0.5 MILLILITER
     Route: 030
  95. TESTOSTERONE [Suspect]
     Active Substance: TESTOSTERONE
     Dosage: 5 MILLILITER  1 EVERY 1 WEEKS
     Route: 030
  96. TESTOSTERONE [Suspect]
     Active Substance: TESTOSTERONE
     Dosage: UNK
     Route: 030
  97. TESTOSTERONE [Suspect]
     Active Substance: TESTOSTERONE
     Dosage: 5 MILLILITER 1 EVERY 1 WEEKS
     Route: 065
  98. TESTOSTERONE [Suspect]
     Active Substance: TESTOSTERONE
     Dosage: 0.5 MILLILITER
     Route: 065
  99. TESTOSTERONE [Suspect]
     Active Substance: TESTOSTERONE
     Dosage: 1 DOSAGE FORM 1EVERY 2 DAYS
     Route: 030
  100. TESTOSTERONE [Suspect]
     Active Substance: TESTOSTERONE
     Dosage: UNK
     Route: 065
  101. TESTOSTERONE [Suspect]
     Active Substance: TESTOSTERONE
     Dosage: 1 DOSAGE FORM,1 EVERY 2 WEEKS
     Route: 065
  102. DEXILANT [Suspect]
     Active Substance: DEXLANSOPRAZOLE
     Indication: Prinzmetal angina
     Dosage: 1 DOSAGE FORM
     Route: 065
  103. DEXILANT [Suspect]
     Active Substance: DEXLANSOPRAZOLE
     Indication: Migraine
     Dosage: 0.5 MILLILITER, DAILY (DOSAGE REGIMEN WAS REPORTED 3 TIMES)
     Route: 065
  104. DEXILANT [Suspect]
     Active Substance: DEXLANSOPRAZOLE
     Dosage: 0.5 MILLILITER
     Route: 065
  105. DEXILANT [Suspect]
     Active Substance: DEXLANSOPRAZOLE
     Dosage: 1 DOSAGE FORM, DAILY (DOSAGE REGIMEN WAS REPORTED 8 TIMES)
     Route: 048
  106. DEXILANT [Suspect]
     Active Substance: DEXLANSOPRAZOLE
     Dosage: 1 DOSAGE FORM, DAILY (DOSAGE REGIMEN WAS REPORTED 8 TIMES)
     Route: 048
  107. DEXILANT [Suspect]
     Active Substance: DEXLANSOPRAZOLE
     Dosage: 0.5 MILLILITER, DAILY (DOSAGE REGIMEN WAS REPORTED 3 TIMES)
     Route: 065
  108. DEXILANT [Suspect]
     Active Substance: DEXLANSOPRAZOLE
     Dosage: 1 DOSAGE FORM, DAILY (DOSAGE REGIMEN WAS REPORTED 8 TIMES)
     Route: 048
  109. DEXILANT [Suspect]
     Active Substance: DEXLANSOPRAZOLE
     Dosage: 1 EVERY 1 DAYS
     Route: 048
  110. HYDROCORTISONE [Suspect]
     Active Substance: HYDROCORTISONE
     Indication: Product used for unknown indication
     Dosage: UNK
     Route: 065
  111. HYDROCORTISONE [Suspect]
     Active Substance: HYDROCORTISONE
     Dosage: 1 DOSAGE FORM DAILY (DOSAGE REGIMEN WAS REPORTED 2 TIMES)
     Route: 061
  112. HYDROCORTISONE [Suspect]
     Active Substance: HYDROCORTISONE
     Dosage: 1 DOSAGE FORM
     Route: 061
  113. ESCITALOPRAM [Suspect]
     Active Substance: ESCITALOPRAM OXALATE
     Indication: Prinzmetal angina
     Dosage: UNK (DOSAGE REGIMEN WAS REPORTED 5 TIMES)
     Route: 065
  114. ESCITALOPRAM [Suspect]
     Active Substance: ESCITALOPRAM OXALATE
     Indication: Migraine
     Dosage: 1 DOSAGE FORM, DAILY
     Route: 065
  115. ESCITALOPRAM [Suspect]
     Active Substance: ESCITALOPRAM OXALATE
     Dosage: 1 DOSAGE FORM
     Route: 065
  116. ESCITALOPRAM [Suspect]
     Active Substance: ESCITALOPRAM OXALATE
     Dosage: 1 EVERY 1 DAYS
     Route: 065
  117. ESCITALOPRAM [Suspect]
     Active Substance: ESCITALOPRAM OXALATE
     Dosage: UNK
     Route: 030
  118. ESCITALOPRAM [Suspect]
     Active Substance: ESCITALOPRAM OXALATE
     Dosage: 0.5 MILLILITER, DAILY
     Route: 030
  119. ESCITALOPRAM [Suspect]
     Active Substance: ESCITALOPRAM OXALATE
     Dosage: 0.5 MILLILITER
     Route: 030
  120. NITROGLYCERIN [Suspect]
     Active Substance: NITROGLYCERIN
     Indication: Prinzmetal angina
     Dosage: 1 DOSAGE FORM 1 EVERY 8 HOURS
     Route: 048
  121. NITROGLYCERIN [Suspect]
     Active Substance: NITROGLYCERIN
     Indication: Migraine
     Dosage: 1 DOSAGE FORM
     Route: 048
  122. NITROGLYCERIN [Suspect]
     Active Substance: NITROGLYCERIN
     Dosage: 1 DOSAGE FORM DAILY
     Route: 048
  123. NITROGLYCERIN [Suspect]
     Active Substance: NITROGLYCERIN
     Dosage: 1 DOSAGE FORM 1 EVERY 4 DAYS
     Route: 048
  124. NITROGLYCERIN [Suspect]
     Active Substance: NITROGLYCERIN
     Dosage: 1 DOSAGE FORM 1 EVERY 6 HOURS (DOSAGE REGIMEN WAS REPORTED 3 TIMES)
     Route: 048
  125. NITROGLYCERIN [Suspect]
     Active Substance: NITROGLYCERIN
     Dosage: UNK
     Route: 048
  126. NITROGLYCERIN [Suspect]
     Active Substance: NITROGLYCERIN
     Dosage: UNK
     Route: 065
  127. NITROGLYCERIN [Suspect]
     Active Substance: NITROGLYCERIN
     Dosage: 1 EVERY 1 DAYS
     Route: 048
  128. NITROGLYCERIN [Suspect]
     Active Substance: NITROGLYCERIN
     Dosage: 1 DOSAGE FORM,(1 EVERY 8 HOURS)
     Route: 065
  129. NITROGLYCERIN [Suspect]
     Active Substance: NITROGLYCERIN
     Dosage: 1 DOSAGE FORM, DAILY (1 EVERY 1 DAY) (DOSAGE REGIMEN WAS REPORTED 2 TIMES)
     Route: 048
  130. HYDROCORTISONE [Suspect]
     Active Substance: HYDROCORTISONE
     Indication: Product used for unknown indication
     Dosage: UNK (DOSAGE REGIMEN WAS REPORTED 2 TIMES)
     Route: 065
  131. HYDROCORTISONE [Suspect]
     Active Substance: HYDROCORTISONE
     Indication: Prinzmetal angina
     Dosage: 1 DOSAGE FORM, DAILY
     Route: 061
  132. HYDROCORTISONE [Suspect]
     Active Substance: HYDROCORTISONE
     Indication: Migraine
     Dosage: 1 DOSAGE FORM (DOSAGE REGIMEN WAS REPORTED 2 TIMES)
     Route: 061
  133. HYDROCORTISONE [Suspect]
     Active Substance: HYDROCORTISONE
     Dosage: UNK (DOSAGE REGIMEN WAS REPORTED 2 TIMES)
     Route: 061
  134. HYDROCORTISONE [Suspect]
     Active Substance: HYDROCORTISONE
     Dosage: 1 DOSAGE FORM DAILY (1 EVERY 1 DAY) (DOSAGE REGIMEN WAS REPORTED 2 TIMES)
     Route: 065
  135. HYDROCORTISONE [Suspect]
     Active Substance: HYDROCORTISONE
     Dosage: 1 EVERY 1 DAY
     Route: 065
  136. HYDROCORTISONE [Suspect]
     Active Substance: HYDROCORTISONE
     Dosage: 1 DOSAGE FORM DAILY (DOSAGE REGIMEN WAS REPORTED 2 TIMES)
     Route: 065
  137. HYDROCORTISONE [Suspect]
     Active Substance: HYDROCORTISONE
     Dosage: 1 EVERY 1 DAY
     Route: 061
  138. LEVOTHYROXINE SODIUM [Suspect]
     Active Substance: LEVOTHYROXINE SODIUM
     Indication: Product used for unknown indication
     Dosage: UNK
     Route: 065
  139. LEVOTHYROXINE SODIUM [Suspect]
     Active Substance: LEVOTHYROXINE SODIUM
     Indication: Prinzmetal angina
     Dosage: 1 DOSAGE FORM
     Route: 065
  140. LEVOTHYROXINE SODIUM [Suspect]
     Active Substance: LEVOTHYROXINE SODIUM
     Indication: Migraine
     Dosage: 1 DOSAGE FORM, DAILY
     Route: 065
  141. LEVOTHYROXINE SODIUM [Suspect]
     Active Substance: LEVOTHYROXINE SODIUM
     Dosage: 1 EVERY 1 DAYS
     Route: 065
  142. METOCLOPRAMIDE HYDROCHLORIDE [Suspect]
     Active Substance: METOCLOPRAMIDE HYDROCHLORIDE
     Indication: Migraine
     Dosage: 1 DOSAGE FORM, DAILY
     Route: 065
  143. METOCLOPRAMIDE HYDROCHLORIDE [Suspect]
     Active Substance: METOCLOPRAMIDE HYDROCHLORIDE
     Indication: Prinzmetal angina
     Dosage: 3 DOSAGE FORM
     Route: 065
  144. METOCLOPRAMIDE HYDROCHLORIDE [Suspect]
     Active Substance: METOCLOPRAMIDE HYDROCHLORIDE
     Dosage: UNK
     Route: 048
  145. METOCLOPRAMIDE HYDROCHLORIDE [Suspect]
     Active Substance: METOCLOPRAMIDE HYDROCHLORIDE
     Dosage: 3 DOSAGE FORM, DAILY
     Route: 065
  146. METOCLOPRAMIDE HYDROCHLORIDE [Suspect]
     Active Substance: METOCLOPRAMIDE HYDROCHLORIDE
     Dosage: 1 DOSAGE FORM
     Route: 065
  147. METOCLOPRAMIDE HYDROCHLORIDE [Suspect]
     Active Substance: METOCLOPRAMIDE HYDROCHLORIDE
     Dosage: 3 DOSAGE FORM 1 EVERY 8 HOURS
     Route: 048
  148. METOCLOPRAMIDE HYDROCHLORIDE [Suspect]
     Active Substance: METOCLOPRAMIDE HYDROCHLORIDE
     Dosage: 1 DOSAGE FORM 1 EVERY 8 HOURS
     Route: 048
  149. METOCLOPRAMIDE HYDROCHLORIDE [Suspect]
     Active Substance: METOCLOPRAMIDE HYDROCHLORIDE
     Dosage: 1 DOSAGE FORM
     Route: 048
  150. METOCLOPRAMIDE HYDROCHLORIDE [Suspect]
     Active Substance: METOCLOPRAMIDE HYDROCHLORIDE
     Dosage: UNK, Q8H (1 EVERY 8 HOURS)
     Route: 065
  151. METOCLOPRAMIDE HYDROCHLORIDE [Suspect]
     Active Substance: METOCLOPRAMIDE HYDROCHLORIDE
     Dosage: 1 EVERY 1 DAYS
     Route: 065
  152. METOCLOPRAMIDE HYDROCHLORIDE [Suspect]
     Active Substance: METOCLOPRAMIDE HYDROCHLORIDE
     Dosage: UNK
     Route: 065
  153. METOCLOPRAMIDE HYDROCHLORIDE [Suspect]
     Active Substance: METOCLOPRAMIDE HYDROCHLORIDE
     Dosage: 1 DOSAGE FORM 1 EVERY 8 HOURS
     Route: 065
  154. METOCLOPRAMIDE HYDROCHLORIDE [Suspect]
     Active Substance: METOCLOPRAMIDE HYDROCHLORIDE
     Dosage: 3 DOSAGE FORM 1 EVERY 8 HOURS
     Route: 065
  155. MOMETASONE FUROATE [Suspect]
     Active Substance: MOMETASONE FUROATE
     Indication: Prinzmetal angina
     Dosage: 1 DOSAGE FORM, DAILY
  156. MOMETASONE FUROATE [Suspect]
     Active Substance: MOMETASONE FUROATE
     Indication: Migraine
     Dosage: 1 DOSAGE FORM
     Route: 065
  157. MOMETASONE FUROATE [Suspect]
     Active Substance: MOMETASONE FUROATE
     Dosage: UNK
  158. MOMETASONE FUROATE [Suspect]
     Active Substance: MOMETASONE FUROATE
     Dosage: 1 DOSAGE FORM, DAILY, INTRA-NASAL
     Route: 065
  159. MOMETASONE FUROATE [Suspect]
     Active Substance: MOMETASONE FUROATE
     Dosage: UNK
     Route: 065
  160. MOMETASONE FUROATE [Suspect]
     Active Substance: MOMETASONE FUROATE
     Dosage: DAILY (1 EVERY 1 DAYS)
  161. MOMETASONE FUROATE [Suspect]
     Active Substance: MOMETASONE FUROATE
     Dosage: 1 DOSAGE FORM DAILY (1 EVERY 1 DAYS).
     Route: 065
  162. MOMETASONE FUROATE [Suspect]
     Active Substance: MOMETASONE FUROATE
     Dosage: 1 DOSAGE FORM 2 EVERY 1 DAYS
     Route: 065
  163. MOMETASONE FUROATE [Suspect]
     Active Substance: MOMETASONE FUROATE
     Dosage: UNK, INTRA-NASAL
     Route: 065
  164. NITROGLYCERIN [Suspect]
     Active Substance: NITROGLYCERIN
     Indication: Prinzmetal angina
     Dosage: 1 DOSAGE FORM
     Route: 049
  165. NITROGLYCERIN [Suspect]
     Active Substance: NITROGLYCERIN
     Indication: Migraine
     Dosage: 1 DOSAGE FORM, DAILY
     Route: 048
  166. NITROGLYCERIN [Suspect]
     Active Substance: NITROGLYCERIN
     Dosage: UNK
     Route: 048
  167. NITROGLYCERIN [Suspect]
     Active Substance: NITROGLYCERIN
     Dosage: 1 DOSAGE FORM, DAILY
     Route: 065
  168. NITROGLYCERIN [Suspect]
     Active Substance: NITROGLYCERIN
     Dosage: 1 DOSAGE FORM
     Route: 048
  169. NITROGLYCERIN [Suspect]
     Active Substance: NITROGLYCERIN
     Dosage: (INHALATION VAPOUR)
     Route: 048
  170. NITROGLYCERIN [Suspect]
     Active Substance: NITROGLYCERIN
     Dosage: 0.5 MILLILITER
     Route: 030
  171. NITROGLYCERIN [Suspect]
     Active Substance: NITROGLYCERIN
     Dosage: 0.5 MILLILITER 1 EVERY 1 DAY
     Route: 065
  172. NITROGLYCERIN [Suspect]
     Active Substance: NITROGLYCERIN
     Dosage: 1 DOSAGE FORM 3 EVERY 1 DAYS
     Route: 065
  173. NITROGLYCERIN [Suspect]
     Active Substance: NITROGLYCERIN
     Dosage: 160 MILLIGRAM
     Route: 065
  174. NITROGLYCERIN [Suspect]
     Active Substance: NITROGLYCERIN
     Dosage: 2 DOSAGE FORM
     Route: 065
  175. NITROGLYCERIN [Suspect]
     Active Substance: NITROGLYCERIN
     Dosage: 1 DOSAGE FORM 4 EVERY 1 DAYS
     Route: 065
  176. NITROGLYCERIN [Suspect]
     Active Substance: NITROGLYCERIN
     Dosage: 1 DOSAGE FORM 3 EVERY 1 DAYS
     Route: 065
  177. NITROGLYCERIN [Suspect]
     Active Substance: NITROGLYCERIN
     Dosage: 160 MILLIGRAM
     Route: 065
  178. NITROGLYCERIN [Suspect]
     Active Substance: NITROGLYCERIN
     Dosage: 1 DOSAGE FORM 2 EVERY 1 DAYS.
     Route: 065
  179. NITROGLYCERIN [Suspect]
     Active Substance: NITROGLYCERIN
     Dosage: 1 DOSAGE FORM 1 EVERY 2 DAYS
     Route: 065
  180. NITROGLYCERIN [Suspect]
     Active Substance: NITROGLYCERIN
     Dosage: 4 DOSAGE FORM 1 EVERY
     Route: 048
  181. NITROGLYCERIN [Suspect]
     Active Substance: NITROGLYCERIN
     Dosage: 5 MILLILITER 2 EVERY 1 WEEKS
     Route: 065
  182. NITROGLYCERIN [Suspect]
     Active Substance: NITROGLYCERIN
     Dosage: 1.5 DOSAGE FORM 1 EVERY 1 DAYS
     Route: 065
  183. NITROGLYCERIN [Suspect]
     Active Substance: NITROGLYCERIN
     Dosage: 2 DOSAGE FORM 1 EVERY 1 DAYS
     Route: 048
  184. NITROGLYCERIN [Suspect]
     Active Substance: NITROGLYCERIN
     Dosage: 2 DOSAGE FORM 1 EVERY 1 DAYS
     Route: 065
  185. NITROGLYCERIN [Suspect]
     Active Substance: NITROGLYCERIN
     Dosage: 3 DOSAGE FORM
     Route: 048
  186. NITROGLYCERIN [Suspect]
     Active Substance: NITROGLYCERIN
     Dosage: 81 MILLIGRAM
     Route: 065
  187. NITROGLYCERIN [Suspect]
     Active Substance: NITROGLYCERIN
     Dosage: 81 MILLIGRAM 1 EVERY 1 DAYS
     Route: 048
  188. NITROGLYCERIN [Suspect]
     Active Substance: NITROGLYCERIN
     Dosage: 10 MILLIGRAM 1 EVERY 1 DAYS.
     Route: 048
  189. NITROGLYCERIN [Suspect]
     Active Substance: NITROGLYCERIN
     Dosage: 2 DOSAGE FORM
     Route: 048
  190. NITROGLYCERIN [Suspect]
     Active Substance: NITROGLYCERIN
     Dosage: UNK
     Route: 061
  191. NITROGLYCERIN [Suspect]
     Active Substance: NITROGLYCERIN
     Dosage: 1 EVERY 8 HOURS
     Route: 048
  192. NITROGLYCERIN [Suspect]
     Active Substance: NITROGLYCERIN
     Dosage: 1 DOSAGE FORM 1 EVERY 8 HOURS
     Route: 065
  193. NITROGLYCERIN [Suspect]
     Active Substance: NITROGLYCERIN
     Dosage: 1 EVERY 1 DAYS
     Route: 048
  194. RAMIPRIL [Suspect]
     Active Substance: RAMIPRIL
     Indication: Product use issue
     Dosage: UNK
     Route: 065
  195. RAMIPRIL [Suspect]
     Active Substance: RAMIPRIL
     Indication: Prinzmetal angina
     Dosage: 4 DOSAGE FORM, DAILY
     Route: 065
  196. RAMIPRIL [Suspect]
     Active Substance: RAMIPRIL
     Indication: Migraine
     Dosage: 1 DOSAGE FORM
     Route: 048
  197. RAMIPRIL [Suspect]
     Active Substance: RAMIPRIL
     Dosage: 1 DOSAGE FORM, DAILY
     Route: 065
  198. RAMIPRIL [Suspect]
     Active Substance: RAMIPRIL
     Dosage: 1 DOSAGE 1 EVERY 6 HOURS
     Route: 065
  199. RAMIPRIL [Suspect]
     Active Substance: RAMIPRIL
     Dosage: 4 DOSAGE FORM
     Route: 048
  200. RAMIPRIL [Suspect]
     Active Substance: RAMIPRIL
     Dosage: (1 EVERY 4 DAY)
     Route: 065
  201. RAMIPRIL [Suspect]
     Active Substance: RAMIPRIL
     Dosage: 1 DOSAGE 1 EVERY 6 HOURS
     Route: 048
  202. RAMIPRIL [Suspect]
     Active Substance: RAMIPRIL
     Dosage: 1 DOSAGE 1 EVERY 4 HOURS
     Route: 065
  203. RAMIPRIL [Suspect]
     Active Substance: RAMIPRIL
     Dosage: 0.25 DOSAGE FORM
     Route: 065
  204. RAMIPRIL [Suspect]
     Active Substance: RAMIPRIL
     Dosage: 1 DOSAGE FORM
     Route: 065
  205. RAMIPRIL [Suspect]
     Active Substance: RAMIPRIL
     Dosage: 4 DOSAGE FORM, DAILY
     Route: 048
  206. RAMIPRIL [Suspect]
     Active Substance: RAMIPRIL
     Dosage: 1 DOSAGE 1 EVERY 6 HOURS
     Route: 048
  207. RAMIPRIL [Suspect]
     Active Substance: RAMIPRIL
     Dosage: (1 EVERY 4 DAY)
     Route: 065
  208. RAMIPRIL [Suspect]
     Active Substance: RAMIPRIL
     Dosage: 1 DOSAGE 1 EVERY 4 HOURS
     Route: 065
  209. RAMIPRIL [Suspect]
     Active Substance: RAMIPRIL
     Dosage: 0.25 DOSAGE FORM
     Route: 065
  210. RAMIPRIL [Suspect]
     Active Substance: RAMIPRIL
     Dosage: 1 EVERY 6 HOURS
     Route: 065
  211. RAMIPRIL [Suspect]
     Active Substance: RAMIPRIL
     Dosage: 10 MILLIGRAM, 1 EVERY 1 DAYS
     Route: 048
  212. MORNIFLUMATE [Suspect]
     Active Substance: MORNIFLUMATE
     Indication: Product used for unknown indication
     Route: 065
  213. ROSUVASTATIN [Suspect]
     Active Substance: ROSUVASTATIN
     Indication: Prinzmetal angina
     Dosage: 1 DOSAGE FORM, DAILY
     Route: 048
  214. ROSUVASTATIN [Suspect]
     Active Substance: ROSUVASTATIN
     Indication: Migraine
     Dosage: 1 DOSAGE FORM
     Route: 048
  215. ROSUVASTATIN [Suspect]
     Active Substance: ROSUVASTATIN
     Dosage: 1 DOSAGE FORM
     Route: 048
  216. ROSUVASTATIN [Suspect]
     Active Substance: ROSUVASTATIN
     Dosage: 1 DOSAGE FORM, DAILY
     Route: 065
  217. ROSUVASTATIN [Suspect]
     Active Substance: ROSUVASTATIN
     Dosage: 0.5 MILLILITER (1 EVERY 1 DAYS)
     Route: 065
  218. ROSUVASTATIN [Suspect]
     Active Substance: ROSUVASTATIN
     Dosage: 0.5 MILLILITER
     Route: 065
  219. ROSUVASTATIN [Suspect]
     Active Substance: ROSUVASTATIN
     Dosage: 1 DOSAGE FORM (1 EVERY 8 HOURS)
     Route: 065
  220. ROSUVASTATIN [Suspect]
     Active Substance: ROSUVASTATIN
     Dosage: 3 DOSAGE FORM, DAILY,(1 EVERY 24 HOURS)
     Route: 065
  221. ROSUVASTATIN [Suspect]
     Active Substance: ROSUVASTATIN
     Dosage: 1 DOSAGE FORM (1 EVERY 6 HOURS)
     Route: 065
  222. ROSUVASTATIN [Suspect]
     Active Substance: ROSUVASTATIN
     Dosage: 1.5 DOSAGE FORM, DAILY, (1 EVERY 24 HOUR)
     Route: 065
  223. ROSUVASTATIN [Suspect]
     Active Substance: ROSUVASTATIN
     Dosage: UNK
     Route: 065
  224. ROSUVASTATIN [Suspect]
     Active Substance: ROSUVASTATIN
     Dosage: 2 DOSAGE FORM, DAILY, (1 EVERY 24 HOURS)
     Route: 065
  225. ROSUVASTATIN [Suspect]
     Active Substance: ROSUVASTATIN
     Dosage: UNK
     Route: 061
  226. ROSUVASTATIN [Suspect]
     Active Substance: ROSUVASTATIN
     Dosage: 2 DOSAGE FORM (1 EVERY 12 HOURS)
     Route: 065
  227. ROSUVASTATIN [Suspect]
     Active Substance: ROSUVASTATIN
     Dosage: 1 DOSAGE FORM (1 EVERY 1 DAYS)
     Route: 065
  228. ROSUVASTATIN [Suspect]
     Active Substance: ROSUVASTATIN
     Dosage: 1 DOSAGE FORM (1 EVERY 1 DAYS)
     Route: 048
  229. ROSUVASTATIN [Suspect]
     Active Substance: ROSUVASTATIN
     Dosage: 1 DOSAGE FORM, DAILY,(1 EVERY 24 HOURS)
     Route: 065
  230. ROSUVASTATIN [Suspect]
     Active Substance: ROSUVASTATIN
     Dosage: UNK
     Route: 058
  231. ROSUVASTATIN [Suspect]
     Active Substance: ROSUVASTATIN
     Dosage: UNK1 DOSAGE FORM 4 EVERY 1 DAYS
     Route: 048
  232. ROSUVASTATIN [Suspect]
     Active Substance: ROSUVASTATIN
     Dosage: 1 EVERY 1 DAYS
     Route: 048
  233. ROSUVASTATIN [Suspect]
     Active Substance: ROSUVASTATIN
     Dosage: 1 EVERY 12 HOURS
     Route: 065
  234. ROSUVASTATIN [Suspect]
     Active Substance: ROSUVASTATIN
     Dosage: 4 DOSAGE FORM, DAILY
     Route: 048
  235. ZOPICLONE [Suspect]
     Active Substance: ZOPICLONE
     Indication: Product used for unknown indication
     Dosage: 1 DOSAGE FORM, DAILY
     Route: 065
  236. ZOPICLONE [Suspect]
     Active Substance: ZOPICLONE
     Indication: Prinzmetal angina
     Dosage: UNK
     Route: 065
  237. ZOPICLONE [Suspect]
     Active Substance: ZOPICLONE
     Indication: Migraine
     Dosage: 1 DOSAGE FORM
     Route: 065
  238. ZOPICLONE [Suspect]
     Active Substance: ZOPICLONE
     Dosage: 1 DOSAGE FORM, DAILY
     Route: 048
  239. ZOPICLONE [Suspect]
     Active Substance: ZOPICLONE
     Dosage: 10 MILLIGRAM,1 EVERY 1 DAYS
     Route: 048
  240. ZOPICLONE [Suspect]
     Active Substance: ZOPICLONE
     Dosage: 1 DOSAGE FORM
     Route: 048
  241. ZOPICLONE [Suspect]
     Active Substance: ZOPICLONE
     Dosage: UNK
     Route: 048
  242. NITROGLYCERIN [Suspect]
     Active Substance: NITROGLYCERIN
     Indication: Prinzmetal angina
     Dosage: 1 EVERY 1 DAYS
     Route: 048
  243. NITROGLYCERIN [Suspect]
     Active Substance: NITROGLYCERIN
     Dosage: UNKNOWN
     Route: 055
  244. NITROGLYCERIN [Suspect]
     Active Substance: NITROGLYCERIN
     Dosage: UNKNOWN
     Route: 048
  245. BISOPROLOL [Suspect]
     Active Substance: BISOPROLOL\BISOPROLOL FUMARATE
     Indication: Prinzmetal angina
     Dosage: 1 DOSAGE FORM, DAILY (1 EVERY 1 DAYS)
     Route: 065
  246. BISOPROLOL [Suspect]
     Active Substance: BISOPROLOL\BISOPROLOL FUMARATE
     Indication: Migraine
     Dosage: UNK
     Route: 065
  247. BISOPROLOL [Suspect]
     Active Substance: BISOPROLOL\BISOPROLOL FUMARATE
     Dosage: 1 DOSAGE FORM
     Route: 065
  248. BISOPROLOL [Suspect]
     Active Substance: BISOPROLOL\BISOPROLOL FUMARATE
     Dosage: 1 DOSAGE FORM, DAILY (1 EVERY 1 DAYS)
     Route: 048
  249. BISOPROLOL [Suspect]
     Active Substance: BISOPROLOL\BISOPROLOL FUMARATE
     Dosage: UNK,1 EVERY 24 HOURS
     Route: 048
  250. DILTIAZEM [Suspect]
     Active Substance: DILTIAZEM
     Indication: Product used for unknown indication
     Dosage: 1 DOSAGE FORM, DAILY (1 EVERY 24 HOURS)
     Route: 065
  251. DILTIAZEM [Suspect]
     Active Substance: DILTIAZEM
     Dosage: 1 DOSAGE FORM, DAILY (1 EVERY 24 HOURS)
     Route: 048
  252. DILTIAZEM [Suspect]
     Active Substance: DILTIAZEM
     Dosage: 1 DOSAGE FORM
     Route: 048
  253. DILTIAZEM [Suspect]
     Active Substance: DILTIAZEM
     Dosage: 1 DOSAGE FORM
     Route: 065
  254. DILTIAZEM [Suspect]
     Active Substance: DILTIAZEM
     Dosage: UNK
     Route: 048
  255. DILTIAZEM [Suspect]
     Active Substance: DILTIAZEM
     Dosage: 1 DOSAGE FORM, DAILY (1 EVERY 24 HOURS)
     Route: 065
  256. DILTIAZEM [Suspect]
     Active Substance: DILTIAZEM
     Dosage: UNK,1 EVERY 24 HOURS
     Route: 048
  257. TAMSULOSIN HYDROCHLORIDE [Suspect]
     Active Substance: TAMSULOSIN HYDROCHLORIDE
     Indication: Product used for unknown indication
     Dosage: 1 DOSAGE FORM, DAILY (1 EVERY 1 DAYS)
     Route: 048
  258. TAMSULOSIN HYDROCHLORIDE [Suspect]
     Active Substance: TAMSULOSIN HYDROCHLORIDE
     Indication: Prinzmetal angina
     Dosage: 1 DOSAGE FORM
     Route: 048
  259. TAMSULOSIN HYDROCHLORIDE [Suspect]
     Active Substance: TAMSULOSIN HYDROCHLORIDE
     Indication: Migraine
     Dosage: 1 DOSAGE FORM
     Route: 065
  260. TAMSULOSIN HYDROCHLORIDE [Suspect]
     Active Substance: TAMSULOSIN HYDROCHLORIDE
     Dosage: UNK
     Route: 065
  261. TAMSULOSIN HYDROCHLORIDE [Suspect]
     Active Substance: TAMSULOSIN HYDROCHLORIDE
     Dosage: UNK, DAILY,(1 EVERY 1 DAYS)
     Route: 048
  262. TAMSULOSIN HYDROCHLORIDE [Suspect]
     Active Substance: TAMSULOSIN HYDROCHLORIDE
     Indication: Product used for unknown indication
     Dosage: 1 DOSAGE FORM, DAILY (1 EVERY 1 DAYS)
     Route: 048
  263. TAMSULOSIN HYDROCHLORIDE [Suspect]
     Active Substance: TAMSULOSIN HYDROCHLORIDE
     Indication: Migraine
     Dosage: 1 DOSAGE FORM, DAILY (1 EVERY 1 DAYS)
     Route: 065
  264. TAMSULOSIN HYDROCHLORIDE [Suspect]
     Active Substance: TAMSULOSIN HYDROCHLORIDE
     Indication: Prinzmetal angina
     Dosage: 1 DOSAGE FORM DAILY (1 EVERY 1 DAYS)
     Route: 048
  265. TAMSULOSIN HYDROCHLORIDE [Suspect]
     Active Substance: TAMSULOSIN HYDROCHLORIDE
     Dosage: 1 DOSAGE FORM
     Route: 048
  266. TAMSULOSIN HYDROCHLORIDE [Suspect]
     Active Substance: TAMSULOSIN HYDROCHLORIDE
     Dosage: 1 DOSAGE FORM DAILY (1 EVERY 1 DAYS)
     Route: 065
  267. TAMSULOSIN HYDROCHLORIDE [Suspect]
     Active Substance: TAMSULOSIN HYDROCHLORIDE
     Dosage: UNK
     Route: 065
  268. TAMSULOSIN HYDROCHLORIDE [Suspect]
     Active Substance: TAMSULOSIN HYDROCHLORIDE
     Dosage: DAILY (1 EVERY 1 DAYS)
     Route: 048
  269. MOMETASONE FUROATE [Suspect]
     Active Substance: MOMETASONE FUROATE
     Indication: Prinzmetal angina
     Dosage: 1 DOSAGE FORM,1 EVERY 1 DAYS
     Route: 065
  270. MOMETASONE FUROATE [Suspect]
     Active Substance: MOMETASONE FUROATE
     Indication: Migraine
     Dosage: 1.5 DOSAGE FORM,1 EVERY 1 DAYS
     Route: 065
  271. MOMETASONE FUROATE [Suspect]
     Active Substance: MOMETASONE FUROATE
     Dosage: 1 DOSAGE FORM
  272. MOMETASONE FUROATE [Suspect]
     Active Substance: MOMETASONE FUROATE
     Dosage: 1 EVERY 1 DAYS
  273. NITROGLYCERIN [Suspect]
     Active Substance: NITROGLYCERIN
     Indication: Prinzmetal angina
     Dosage: 1 DOSAGE FORM, DAILY (1 EVERY 1 DAYS)
     Route: 065
  274. NITROGLYCERIN [Suspect]
     Active Substance: NITROGLYCERIN
     Indication: Migraine
     Dosage: 1 DOSAGE FORM
     Route: 048
  275. NITROGLYCERIN [Suspect]
     Active Substance: NITROGLYCERIN
     Dosage: 1 EVERY 8 HOURS
     Route: 048
  276. NITROGLYCERIN [Suspect]
     Active Substance: NITROGLYCERIN
     Dosage: 1 EVERY 1 DAYS
     Route: 048
  277. NITROGLYCERIN [Suspect]
     Active Substance: NITROGLYCERIN
     Dosage: 1 DOSAGE FORM, 1 EVERY 8 HOURS
     Route: 048
  278. NITROGLYCERIN [Suspect]
     Active Substance: NITROGLYCERIN
     Dosage: UNK
     Route: 048
  279. NITROGLYCERIN [Suspect]
     Active Substance: NITROGLYCERIN
     Dosage: 1 DOSAGE FORM, 1 EVERY 6 HOURS
     Route: 048
  280. NITROGLYCERIN [Suspect]
     Active Substance: NITROGLYCERIN
     Dosage: 1 EVERY 4 DAYS
     Route: 048
  281. ASPIRIN [Concomitant]
     Active Substance: ASPIRIN
     Indication: Prinzmetal angina
     Dosage: 1 DOSAGE FORM, DAILY
     Route: 065
  282. ASPIRIN [Concomitant]
     Active Substance: ASPIRIN
     Indication: Migraine
     Dosage: 81 MILLIGRAM, DAILY
     Route: 065
  283. ASPIRIN [Concomitant]
     Active Substance: ASPIRIN
     Dosage: 1 DOSAGE FORM, DAILY
     Route: 048
  284. BISOPROLOL [Concomitant]
     Active Substance: BISOPROLOL\BISOPROLOL FUMARATE
     Indication: Product used for unknown indication
     Dosage: 1 DOSAGE FORM, DAILY
     Route: 065
  285. BISOPROLOL [Concomitant]
     Active Substance: BISOPROLOL\BISOPROLOL FUMARATE
     Indication: Prinzmetal angina
     Dosage: 1 DOSAGE FORM
     Route: 048
  286. BISOPROLOL [Concomitant]
     Active Substance: BISOPROLOL\BISOPROLOL FUMARATE
     Indication: Migraine
     Dosage: 1 DOSAGE FORM, DAILY (1 EVERY 1 DAYS)
     Route: 048
  287. BISOPROLOL [Concomitant]
     Active Substance: BISOPROLOL\BISOPROLOL FUMARATE
     Dosage: UNK
     Route: 048
  288. BENZOYL PEROXIDE [Concomitant]
     Active Substance: BENZOYL PEROXIDE
     Indication: Prinzmetal angina
     Dosage: 1 DOSAGE FORM, DAILY
     Route: 061
  289. BENZOYL PEROXIDE [Concomitant]
     Active Substance: BENZOYL PEROXIDE
     Indication: Migraine
  290. BENZOYL PEROXIDE [Concomitant]
     Active Substance: BENZOYL PEROXIDE
     Indication: Product used for unknown indication
  291. CICLOPIROX [Concomitant]
     Active Substance: CICLOPIROX\TOCOPHEROL
     Indication: Product used for unknown indication
     Dosage: UNK
     Route: 065
  292. CICLOPIROX [Concomitant]
     Active Substance: CICLOPIROX\TOCOPHEROL
     Indication: Prinzmetal angina
  293. CICLOPIROX [Concomitant]
     Active Substance: CICLOPIROX\TOCOPHEROL
     Indication: Migraine
  294. MORNIFLUMATE [Concomitant]
     Active Substance: MORNIFLUMATE
     Indication: Product used for unknown indication
     Dosage: 1 DOSAGE FORM, DAILY
     Route: 065
  295. MORNIFLUMATE [Concomitant]
     Active Substance: MORNIFLUMATE
     Indication: Prinzmetal angina
     Dosage: UNK, DAILY (1 EVERY 1 DAYS)
     Route: 065
  296. MORNIFLUMATE [Concomitant]
     Active Substance: MORNIFLUMATE
     Indication: Migraine
     Dosage: UNK
     Route: 065
  297. RAMIPRIL [Concomitant]
     Active Substance: RAMIPRIL
     Indication: Product used for unknown indication
     Dosage: 0.25 DOSAGE FORM
     Route: 065
  298. RAMIPRIL [Concomitant]
     Active Substance: RAMIPRIL
     Indication: Prinzmetal angina
     Dosage: 1 DOSAGE FORM, DAILY
     Route: 048
  299. RAMIPRIL [Concomitant]
     Active Substance: RAMIPRIL
     Indication: Migraine
     Dosage: 4 DOSAGE FORM, DAILY
     Route: 065
  300. RAMIPRIL [Concomitant]
     Active Substance: RAMIPRIL
     Dosage: 1 DOSAGE FORM
     Route: 065
  301. RAMIPRIL [Concomitant]
     Active Substance: RAMIPRIL
     Dosage: 1 DOSAGE FORM, Q6H (1 EVERY 6 HOURS)
     Route: 065
  302. RAMIPRIL [Concomitant]
     Active Substance: RAMIPRIL
     Dosage: 4 DOSAGE FORM, DAILY
     Route: 048
  303. NITROGLYCERIN [Concomitant]
     Active Substance: NITROGLYCERIN
     Indication: Prinzmetal angina
     Dosage: UNK
     Route: 048
  304. NITROGLYCERIN [Concomitant]
     Active Substance: NITROGLYCERIN
     Indication: Migraine
     Dosage: 1 DOSAGE FORM, DAILY
     Route: 048
  305. BISOPROLOL FUMARATE [Concomitant]
     Active Substance: BISOPROLOL FUMARATE
     Indication: Product used for unknown indication
     Dosage: 1 DOSAGE FORM, DAILY
     Route: 065
  306. BISOPROLOL FUMARATE [Concomitant]
     Active Substance: BISOPROLOL FUMARATE
     Indication: Prinzmetal angina
     Dosage: 1 DOSAGE FORM, DAILY
     Route: 048
  307. BISOPROLOL FUMARATE [Concomitant]
     Active Substance: BISOPROLOL FUMARATE
     Indication: Migraine
     Dosage: 1 DOSAGE FORM
     Route: 048
  308. PREDNISONE [Concomitant]
     Active Substance: PREDNISONE
     Indication: Product used for unknown indication
     Dosage: UNK
     Route: 065
  309. PREDNISONE [Concomitant]
     Active Substance: PREDNISONE
     Indication: Prinzmetal angina
  310. PREDNISONE [Concomitant]
     Active Substance: PREDNISONE
     Indication: Migraine
  311. ACETAMINOPHEN\CODEINE PHOSPHATE [Concomitant]
     Active Substance: ACETAMINOPHEN\CODEINE PHOSPHATE
     Indication: Product used for unknown indication
     Dosage: UNKNOWN
     Route: 065
  312. ACETAMINOPHEN\CODEINE PHOSPHATE [Concomitant]
     Active Substance: ACETAMINOPHEN\CODEINE PHOSPHATE
     Dosage: UNK
     Route: 048
  313. ACETAMINOPHEN [Concomitant]
     Active Substance: ACETAMINOPHEN
     Indication: Prinzmetal angina
     Dosage: 160 MILLIGRAM 1 EVERY 1 DAYS
     Route: 065
  314. ACETAMINOPHEN [Concomitant]
     Active Substance: ACETAMINOPHEN
     Indication: Migraine
     Dosage: 160 MILLIGRAM
     Route: 065
  315. ALPRAZOLAM [Concomitant]
     Active Substance: ALPRAZOLAM
     Indication: Product used for unknown indication
     Dosage: 1 DOSAGE FORM
     Route: 065
  316. ALPRAZOLAM [Concomitant]
     Active Substance: ALPRAZOLAM
     Indication: Prinzmetal angina
     Dosage: UNK
     Route: 065
  317. ALPRAZOLAM [Concomitant]
     Active Substance: ALPRAZOLAM
     Indication: Migraine
  318. AMLODIPINE BESYLATE [Concomitant]
     Active Substance: AMLODIPINE BESYLATE
     Indication: Product used for unknown indication
     Dosage: 2 DOSAGE FORM
     Route: 065
  319. AMLODIPINE BESYLATE [Concomitant]
     Active Substance: AMLODIPINE BESYLATE
     Indication: Prinzmetal angina
     Dosage: 1 EVERY 1 DAYS
     Route: 065
  320. AMLODIPINE BESYLATE [Concomitant]
     Active Substance: AMLODIPINE BESYLATE
     Indication: Migraine
     Dosage: 1 DOSAGE 1 EVERY 1 DAYS
     Route: 065
  321. AMLODIPINE BESYLATE [Concomitant]
     Active Substance: AMLODIPINE BESYLATE
     Dosage: 1 DOSAGE FORM
     Route: 065
  322. AMLODIPINE BESYLATE [Concomitant]
     Active Substance: AMLODIPINE BESYLATE
     Dosage: 1 DOSAGE FORM 1 EVERY 8 HOURS
     Route: 065
  323. BRILINTA [Concomitant]
     Active Substance: TICAGRELOR
     Indication: Prinzmetal angina
     Dosage: 1 DOSAGE FORM
     Route: 065
  324. BRILINTA [Concomitant]
     Active Substance: TICAGRELOR
     Indication: Migraine
     Dosage: 1 EVERY 1 DAYS
     Route: 065
  325. BRILINTA [Concomitant]
     Active Substance: TICAGRELOR
     Dosage: 2 DOSAGE FORM
     Route: 065
  326. BRILINTA [Concomitant]
     Active Substance: TICAGRELOR
     Dosage: 2 DOSAGE FORM 1 EVERY 1 DAY
     Route: 065
  327. BRILINTA [Concomitant]
     Active Substance: TICAGRELOR
     Dosage: 2 DOSAGE FORM
     Route: 048
  328. BRILINTA [Concomitant]
     Active Substance: TICAGRELOR
     Dosage: 1 EVERY 12 HOURS
     Route: 065
  329. BRILINTA [Concomitant]
     Active Substance: TICAGRELOR
     Dosage: 1 DOSAGE FORM 1 EVERY 0.5 DAYS
     Route: 048
  330. CLONAZEPAM [Concomitant]
     Active Substance: CLONAZEPAM
     Indication: Product used for unknown indication
     Dosage: 3 DOSAGE FORM 1 EVERY 1 DAY
     Route: 048
  331. CLONAZEPAM [Concomitant]
     Active Substance: CLONAZEPAM
     Indication: Prinzmetal angina
     Dosage: 3 DOSAGE FORM 1 EVERY 1 DAY
     Route: 065
  332. CLONAZEPAM [Concomitant]
     Active Substance: CLONAZEPAM
     Indication: Migraine
     Dosage: 1 DOSAGE FORM
     Route: 065
  333. CLONAZEPAM [Concomitant]
     Active Substance: CLONAZEPAM
     Dosage: 1 DOSAGE FORM  1 EVERY 1 DAY
     Route: 065
  334. CLONAZEPAM [Concomitant]
     Active Substance: CLONAZEPAM
     Dosage: 1 EVERY 1 DAY
     Route: 065
  335. CLONAZEPAM [Concomitant]
     Active Substance: CLONAZEPAM
     Dosage: 1 EVERY 1 DAY
     Route: 065
  336. CLONAZEPAM [Concomitant]
     Active Substance: CLONAZEPAM
     Dosage: 1 DOSAGE FORM 1 EVERY 8 HOURS
     Route: 065
  337. CLONAZEPAM [Concomitant]
     Active Substance: CLONAZEPAM
     Dosage: 1 EVERY 8 HOURS
     Route: 065
  338. CLONAZEPAM [Concomitant]
     Active Substance: CLONAZEPAM
     Dosage: 3 DOSAGE FORM 1 EVERY 8 HOURS
     Route: 048
  339. CLONAZEPAM [Concomitant]
     Active Substance: CLONAZEPAM
     Dosage: 0.5 MILLIGRAM, 1 EVERY 1 DAY
     Route: 048
  340. CLONAZEPAM [Concomitant]
     Active Substance: CLONAZEPAM
     Dosage: 0.5 MILLIGRAM
     Route: 048
  341. CLONAZEPAM [Concomitant]
     Active Substance: CLONAZEPAM
     Dosage: 1 DOSAGE FORM 1 EVERY .3 DAYS
     Route: 048
  342. CLONAZEPAM [Concomitant]
     Active Substance: CLONAZEPAM
     Dosage: 1 EVERY 8 HOURS
     Route: 048
  343. CODEINE [Concomitant]
     Active Substance: CODEINE
     Indication: Product used for unknown indication
     Dosage: UNK
     Route: 065
  344. TESTOSTERONE [Concomitant]
     Active Substance: TESTOSTERONE
     Indication: Prinzmetal angina
     Dosage: 0.5 MILLILITER, 1 EVERY 2 WEEKS
     Route: 065
  345. TESTOSTERONE [Concomitant]
     Active Substance: TESTOSTERONE
     Indication: Migraine
     Dosage: 0.5 MILLILITER, 1 EVERY 1 DAYS
     Route: 065
  346. TESTOSTERONE [Concomitant]
     Active Substance: TESTOSTERONE
     Dosage: 0.5 MILLILITER
     Route: 065
  347. TESTOSTERONE [Concomitant]
     Active Substance: TESTOSTERONE
     Dosage: 0.5 MILLILITER
     Route: 065
  348. DEXILANT [Concomitant]
     Active Substance: DEXLANSOPRAZOLE
     Indication: Product used for unknown indication
     Dosage: 1 DOSAGE FORM
     Route: 065
  349. DEXILANT [Concomitant]
     Active Substance: DEXLANSOPRAZOLE
     Indication: Prinzmetal angina
     Dosage: 1 EVERY 1 DAYS
     Route: 048
  350. DEXILANT [Concomitant]
     Active Substance: DEXLANSOPRAZOLE
     Indication: Migraine
     Dosage: 1 EVERY 1 DAYS
     Route: 048
  351. DEXILANT [Concomitant]
     Active Substance: DEXLANSOPRAZOLE
     Dosage: 0.5 MILLILITER
     Route: 065
  352. DEXILANT [Concomitant]
     Active Substance: DEXLANSOPRAZOLE
     Dosage: 1 DOSAGE FORM 1 EVERY 1 DAYS
     Route: 065
  353. DEXILANT [Concomitant]
     Active Substance: DEXLANSOPRAZOLE
     Dosage: 1 DOSAGE FORM 1 EVERY 1 DAYS
     Route: 065
  354. DEXILANT [Concomitant]
     Active Substance: DEXLANSOPRAZOLE
     Dosage: 0.5 MILLILITER, 1 EVERY 1 DAYS
     Route: 065
  355. DILTIAZEM [Concomitant]
     Active Substance: DILTIAZEM
     Indication: Product used for unknown indication
     Dosage: 1 DOSAGE FORM
     Route: 065
  356. DILTIAZEM [Concomitant]
     Active Substance: DILTIAZEM
     Indication: Prinzmetal angina
     Dosage: 1 DOSAGE FORM 1 EVERY 1 DAYS
     Route: 065
  357. DILTIAZEM [Concomitant]
     Active Substance: DILTIAZEM
     Indication: Migraine
     Dosage: 1 EVERY 1 DAYS
     Route: 065
  358. DILTIAZEM [Concomitant]
     Active Substance: DILTIAZEM
     Dosage: 1 DOSAGE FORM 1 EVERY 1 DAYS
     Route: 048
  359. DILTIAZEM [Concomitant]
     Active Substance: DILTIAZEM
     Dosage: 1 EVERY 1 DAYS
     Route: 048
  360. HYDROCORTISONE [Concomitant]
     Active Substance: HYDROCORTISONE
     Indication: Product used for unknown indication
     Dosage: 1 DOSAGE FORM
     Route: 061
  361. HYDROCORTISONE [Concomitant]
     Active Substance: HYDROCORTISONE
     Indication: Prinzmetal angina
     Dosage: 1 DOSAGE FORM  1 EVERY 1 DAYS
     Route: 061
  362. HYDROCORTISONE [Concomitant]
     Active Substance: HYDROCORTISONE
     Indication: Migraine
     Dosage: 1 EVERY 1 DAYS
     Route: 061
  363. HYDROCORTISONE [Concomitant]
     Active Substance: HYDROCORTISONE
     Dosage: 1 DOSAGE FORM  1 EVERY 1 DAYS
     Route: 061
  364. HYDROCORTISONE [Concomitant]
     Active Substance: HYDROCORTISONE
     Dosage: UNK
     Route: 065
  365. ESCITALOPRAM [Concomitant]
     Active Substance: ESCITALOPRAM OXALATE
     Indication: Prinzmetal angina
     Dosage: UNK
     Route: 065
  366. ESCITALOPRAM [Concomitant]
     Active Substance: ESCITALOPRAM OXALATE
     Indication: Migraine
     Dosage: 1 DOSAGE FORM 1 EVERY 1 DAYS
     Route: 065
  367. ESCITALOPRAM [Concomitant]
     Active Substance: ESCITALOPRAM OXALATE
     Dosage: 1 EVERY 1 DAYS
     Route: 065
  368. ESCITALOPRAM [Concomitant]
     Active Substance: ESCITALOPRAM OXALATE
     Dosage: 0.5 MILLILITER, 1 EVERY 1 DAYS
     Route: 030
  369. NITROGLYCERIN [Concomitant]
     Active Substance: NITROGLYCERIN
     Indication: Prinzmetal angina
     Dosage: 1 EVERY 1 DAYS
     Route: 048
  370. NITROGLYCERIN [Concomitant]
     Active Substance: NITROGLYCERIN
     Indication: Migraine
     Dosage: UNK
     Route: 065
  371. NITROGLYCERIN [Concomitant]
     Active Substance: NITROGLYCERIN
     Dosage: UNK
     Route: 065
  372. NITROGLYCERIN [Concomitant]
     Active Substance: NITROGLYCERIN
     Dosage: 1 DOSAGE FORM
     Route: 048
  373. NITROGLYCERIN [Concomitant]
     Active Substance: NITROGLYCERIN
     Dosage: 1 DOSAGE FORM
     Route: 048
  374. NITROGLYCERIN [Concomitant]
     Active Substance: NITROGLYCERIN
     Dosage: 1 EVERY 8 HOURS
     Route: 065
  375. NITROGLYCERIN [Concomitant]
     Active Substance: NITROGLYCERIN
     Dosage: 1 DOSAGE FORM 1 EVERY 1 DAYS
     Route: 048
  376. NITROGLYCERIN [Concomitant]
     Active Substance: NITROGLYCERIN
     Dosage: 1 DOSAGE FORM 1 EVERY 1 DAYS
     Route: 065
  377. NITROGLYCERIN [Concomitant]
     Active Substance: NITROGLYCERIN
     Dosage: 1 EVERY 4 DAYS
     Route: 048
  378. HYDROCORTISONE BUTYRATE [Concomitant]
     Active Substance: HYDROCORTISONE BUTYRATE
     Indication: Prinzmetal angina
     Dosage: 1 DOSAGE FORM 1 EVERY 1 DAYS
     Route: 061
  379. HYDROCORTISONE BUTYRATE [Concomitant]
     Active Substance: HYDROCORTISONE BUTYRATE
     Indication: Migraine
     Dosage: 1 DOSAGE FORM 1 EVERY 1 DAYS
     Route: 065
  380. HYDROMORPHONE [Concomitant]
     Active Substance: HYDROMORPHONE
     Indication: Prinzmetal angina
     Dosage: UNK
     Route: 065
  381. HYDROMORPHONE [Concomitant]
     Active Substance: HYDROMORPHONE
     Indication: Migraine
  382. LEVOTHYROXINE SODIUM [Concomitant]
     Active Substance: LEVOTHYROXINE SODIUM
     Indication: Prinzmetal angina
     Dosage: UNK
     Route: 065
  383. LEVOTHYROXINE SODIUM [Concomitant]
     Active Substance: LEVOTHYROXINE SODIUM
     Indication: Migraine
     Dosage: 1 DOSAGE FORM
     Route: 065
  384. LEVOTHYROXINE SODIUM [Concomitant]
     Active Substance: LEVOTHYROXINE SODIUM
     Dosage: 1 DOSAGE FORM  1 EVERY 1 DAYS
     Route: 065
  385. LEVOTHYROXINE SODIUM [Concomitant]
     Active Substance: LEVOTHYROXINE SODIUM
     Dosage: 1 EVERY 1 DAYS
     Route: 065
  386. METOCLOPRAMIDE HYDROCHLORIDE [Concomitant]
     Active Substance: METOCLOPRAMIDE HYDROCHLORIDE
     Indication: Migraine
     Dosage: 1 EVERY 1 DAY
     Route: 065
  387. METOCLOPRAMIDE HYDROCHLORIDE [Concomitant]
     Active Substance: METOCLOPRAMIDE HYDROCHLORIDE
     Indication: Prinzmetal angina
     Dosage: 3 DOSAGE FORM 1 EVERY 1 DAY
     Route: 065
  388. METOCLOPRAMIDE HYDROCHLORIDE [Concomitant]
     Active Substance: METOCLOPRAMIDE HYDROCHLORIDE
     Dosage: 3 DOSAGE FORM 1 EVERY 1 DAY
     Route: 048
  389. METOCLOPRAMIDE HYDROCHLORIDE [Concomitant]
     Active Substance: METOCLOPRAMIDE HYDROCHLORIDE
     Dosage: 1 DOSAGE FORM 1 EVERY 1 DAY
     Route: 065
  390. METOCLOPRAMIDE HYDROCHLORIDE [Concomitant]
     Active Substance: METOCLOPRAMIDE HYDROCHLORIDE
     Dosage: 1 EVERY 1 DAY
     Route: 048
  391. METOCLOPRAMIDE HYDROCHLORIDE [Concomitant]
     Active Substance: METOCLOPRAMIDE HYDROCHLORIDE
     Dosage: 1 DOSAGE FORM 1 EVERY 8 HOURS
     Route: 065
  392. METOCLOPRAMIDE HYDROCHLORIDE [Concomitant]
     Active Substance: METOCLOPRAMIDE HYDROCHLORIDE
     Dosage: 1 DOSAGE FORM 1 EVERY 8 HOURS
     Route: 048
  393. METOCLOPRAMIDE HYDROCHLORIDE [Concomitant]
     Active Substance: METOCLOPRAMIDE HYDROCHLORIDE
     Dosage: 1 DOSAGE FORM 1 EVERY 8 HOURS
     Route: 048
  394. METOCLOPRAMIDE HYDROCHLORIDE [Concomitant]
     Active Substance: METOCLOPRAMIDE HYDROCHLORIDE
     Dosage: 1 EVERY 8 HOURS
     Route: 048
  395. METOCLOPRAMIDE HYDROCHLORIDE [Concomitant]
     Active Substance: METOCLOPRAMIDE HYDROCHLORIDE
     Dosage: 1 DOSAGE FORM  1 EVERY 0.3 DAYS
     Route: 065
  396. METOCLOPRAMIDE HYDROCHLORIDE [Concomitant]
     Active Substance: METOCLOPRAMIDE HYDROCHLORIDE
     Dosage: 3 DOSAGE FORM
     Route: 065
  397. METOCLOPRAMIDE HYDROCHLORIDE [Concomitant]
     Active Substance: METOCLOPRAMIDE HYDROCHLORIDE
     Dosage: 3 DOSAGE FORM  1 EVERY 8 HOURS
     Route: 048
  398. METOCLOPRAMIDE HYDROCHLORIDE [Concomitant]
     Active Substance: METOCLOPRAMIDE HYDROCHLORIDE
     Dosage: 3 DOSAGE FORM 1 EVERY 0.3 DAYS
     Route: 065
  399. MOMETASONE FUROATE [Concomitant]
     Active Substance: MOMETASONE FUROATE
     Indication: Prinzmetal angina
     Dosage: 1 EVERY 1 DAYS
  400. MOMETASONE FUROATE [Concomitant]
     Active Substance: MOMETASONE FUROATE
     Indication: Migraine
     Dosage: 1 DOSAGE FORM 1 EVERY 1 DAYS
  401. MOMETASONE FUROATE [Concomitant]
     Active Substance: MOMETASONE FUROATE
     Dosage: 1 DOSAGE FORM
     Route: 065
  402. NASONEX [Concomitant]
     Active Substance: MOMETASONE FUROATE
     Indication: Prinzmetal angina
     Dosage: 1 DOSAGE FORM  1 EVERY 1 DAYS
     Route: 065
  403. NASONEX [Concomitant]
     Active Substance: MOMETASONE FUROATE
     Indication: Migraine
     Dosage: 1 DOSAGE FORM  1 EVERY 1 DAYS
     Route: 065
  404. NASONEX [Concomitant]
     Active Substance: MOMETASONE FUROATE
     Dosage: 1 EVERY 1 DAYS
  405. NASONEX [Concomitant]
     Active Substance: MOMETASONE FUROATE
     Dosage: 1 DOSAGE FORM 1 EVERY 1 DAYS
  406. NASONEX [Concomitant]
     Active Substance: MOMETASONE FUROATE
     Dosage: UNK
     Route: 065
  407. RAMIPRIL [Concomitant]
     Active Substance: RAMIPRIL
     Indication: Product used for unknown indication
     Dosage: 1 EVERY 4 DAYS
     Route: 048
  408. ZOPICLONE [Concomitant]
     Active Substance: ZOPICLONE
     Indication: Product used for unknown indication
     Dosage: 1 DOSAGE FORM
     Route: 065
  409. ZOPICLONE [Concomitant]
     Active Substance: ZOPICLONE
     Indication: Prinzmetal angina
     Dosage: 1 DOSAGE FORM
     Route: 048
  410. ZOPICLONE [Concomitant]
     Active Substance: ZOPICLONE
     Indication: Migraine
     Dosage: 1 DOSAGE FORM  1 EVERY 1 DAYS
     Route: 065
  411. ZOPICLONE [Concomitant]
     Active Substance: ZOPICLONE
     Dosage: 1 EVERY 1 DAYS
     Route: 048
  412. ZOPICLONE [Concomitant]
     Active Substance: ZOPICLONE
     Dosage: UNK
     Route: 065
  413. ZOPICLONE [Concomitant]
     Active Substance: ZOPICLONE
     Dosage: 1 DOSAGE FORM 1 EVERY 1 DAYS
     Route: 048
  414. ROSUVASTATIN CALCIUM [Concomitant]
     Active Substance: ROSUVASTATIN CALCIUM
     Indication: Prinzmetal angina
     Dosage: 1 EVERY 1 DAYS
     Route: 065
  415. ROSUVASTATIN CALCIUM [Concomitant]
     Active Substance: ROSUVASTATIN CALCIUM
     Indication: Migraine
     Dosage: 1 DOSAGE FORM 1 EVERY 1 DAYS
     Route: 065
  416. ROSUVASTATIN CALCIUM [Concomitant]
     Active Substance: ROSUVASTATIN CALCIUM
     Dosage: 1 DOSAGE FORM 1 EVERY 1 DAYS
     Route: 048
  417. ROSUVASTATIN CALCIUM [Concomitant]
     Active Substance: ROSUVASTATIN CALCIUM
     Dosage: UNK
     Route: 048
  418. ROSUVASTATIN CALCIUM [Concomitant]
     Active Substance: ROSUVASTATIN CALCIUM
     Dosage: 1 EVERY 1 DAYS
     Route: 048
  419. TRAZODONE HYDROCHLORIDE [Concomitant]
     Active Substance: TRAZODONE HYDROCHLORIDE
     Indication: Prinzmetal angina
     Dosage: 1 EVERY 1 DAYS
     Route: 065
  420. TRAZODONE HYDROCHLORIDE [Concomitant]
     Active Substance: TRAZODONE HYDROCHLORIDE
     Indication: Migraine
     Dosage: 1 DOSAGE FORM 1 EVERY 1 DAYS
     Route: 065
  421. TRAZODONE HYDROCHLORIDE [Concomitant]
     Active Substance: TRAZODONE HYDROCHLORIDE
     Dosage: UNK
     Route: 048

REACTIONS (4)
  - Device malfunction [Recovered/Resolved]
  - Device dislocation [Recovered/Resolved]
  - Drug ineffective [Recovered/Resolved]
  - Product use in unapproved indication [Recovered/Resolved]
